FAERS Safety Report 10025625 (Version 1)
Quarter: 2014Q1

REPORT INFORMATION
  Report Type: Spontaneous
  Country: PE (occurrence: PE)
  Receive Date: 20140320
  Receipt Date: 20140320
  Transmission Date: 20141002
  Serious: Yes (Hospitalization)
  Sender: FDA-Public Use
  Company Number: PE-PFIZER INC-2014079121

PATIENT
  Age: 51 Year
  Sex: Female

DRUGS (1)
  1. LYRICA [Suspect]
     Route: 048

REACTIONS (6)
  - Fall [Not Recovered/Not Resolved]
  - Feeling of despair [Unknown]
  - Crying [Unknown]
  - Asthenia [Unknown]
  - Tremor [Unknown]
  - Eating disorder [Unknown]
